FAERS Safety Report 14700124 (Version 1)
Quarter: 2018Q1

REPORT INFORMATION
  Report Type: Spontaneous
  Country: SE (occurrence: SE)
  Receive Date: 20180330
  Receipt Date: 20180330
  Transmission Date: 20180509
  Serious: Yes (Other)
  Sender: FDA-Public Use
  Company Number: SE-TEVA-2018-SE-873188

PATIENT
  Sex: Male

DRUGS (1)
  1. LOSARTAN ACTAVIS [Suspect]
     Active Substance: LOSARTAN
     Route: 048
     Dates: end: 201703

REACTIONS (2)
  - Renal failure [Unknown]
  - Diarrhoea [Unknown]

NARRATIVE: CASE EVENT DATE: 2016
